FAERS Safety Report 4796651-5 (Version None)
Quarter: 2005Q4

REPORT INFORMATION
  Report Type: 
  Country: None (occurrence: None)
  Receive Date: 20051013
  Receipt Date: 20051003
  Transmission Date: 20060501
  Serious: Yes (Death)
  Sender: FDA-Public Use
  Company Number: US-JNJFOC-20050901755

PATIENT
  Sex: Female
  Weight: 101.15 kg

DRUGS (17)
  1. REMICADE [Suspect]
     Route: 042
  2. REMICADE [Suspect]
     Indication: CROHN'S DISEASE
     Route: 042
  3. ROBINUL FORTE [Concomitant]
  4. NIFEREX [Concomitant]
  5. PETASA [Concomitant]
  6. PROTONIX [Concomitant]
     Dosage: PRN
  7. DARVON [Concomitant]
     Dosage: 2 EVERY 4 HOURS PRN
     Route: 048
  8. AMBIEN [Concomitant]
     Dosage: Q HS PRN
  9. LOTREL [Concomitant]
  10. LOTREL [Concomitant]
  11. ZOLOFT [Concomitant]
  12. DURAGESIC-100 [Concomitant]
  13. GLUCOSAMINE [Concomitant]
  14. METHOTREXATE [Concomitant]
     Route: 030
  15. B-12 [Concomitant]
  16. LOMOTIL [Concomitant]
  17. LOMOTIL [Concomitant]
     Dosage: QD PRN

REACTIONS (2)
  - KNEE ARTHROPLASTY [None]
  - PULMONARY EMBOLISM [None]
